FAERS Safety Report 7850947-9 (Version None)
Quarter: 2011Q4

REPORT INFORMATION
  Report Type: 
  Country: None (occurrence: None)
  Receive Date: 20111021
  Receipt Date: 20111018
  Transmission Date: 20120403
  Serious: Yes (Other)
  Sender: FDA-Public Use
  Company Number: GER/UKI/11/0021626

PATIENT
  Age: 65 Year
  Sex: Male
  Weight: 74.4 kg

DRUGS (9)
  1. FYBOGEL (PLANTAGO OVATA) [Concomitant]
  2. NORTRIPTYLINE HCL [Concomitant]
  3. OMEPRAZOLE [Suspect]
     Indication: DYSPEPSIA
     Dosage: 20 MG, 1 IN 1 D, ORAL
     Route: 048
     Dates: start: 20090801, end: 20110810
  4. ACETAMINOPHEN [Concomitant]
  5. CITALOPRAM HYDROBROMIDE [Concomitant]
  6. GABAPENTIN [Concomitant]
  7. CODEINE SULFATE [Concomitant]
  8. MOVICOL (POLYETHYL. GLYC. W/POTAS. CHLOR. /SOD. BICARB) [Concomitant]
  9. DICLOFENAC SODIUM [Suspect]
     Indication: ARTHRITIS
     Dosage: 150 MG, 1 IN 1 D, ORAL
     Route: 048
     Dates: start: 20090801, end: 20110810

REACTIONS (2)
  - BLOOD COUNT ABNORMAL [None]
  - VITAMIN B12 DECREASED [None]
